FAERS Safety Report 10447240 (Version 1)
Quarter: 2014Q3

REPORT INFORMATION
  Report Type: Spontaneous
  Country: JP (occurrence: JP)
  Receive Date: 20140911
  Receipt Date: 20140911
  Transmission Date: 20150326
  Serious: Yes (Other)
  Sender: FDA-Public Use
  Company Number: JP-MYLANLABS-2014M1003257

PATIENT

DRUGS (5)
  1. CARBOPLATIN INJECTION 50 MG ^NK^ [Suspect]
     Active Substance: CARBOPLATIN
     Indication: UTERINE CANCER
     Dosage: 590 MG, UNK
     Route: 041
     Dates: start: 20140225, end: 20140617
  2. PACLITAXEL. [Suspect]
     Active Substance: PACLITAXEL
     Indication: UTERINE CANCER
     Dosage: 285 MG, UNK
     Route: 041
     Dates: start: 20140225, end: 20140617
  3. GRANISETRON [Concomitant]
     Active Substance: GRANISETRON
     Dosage: 3 MG, UNK
     Route: 041
     Dates: start: 20140225, end: 20140617
  4. DECADRON [Concomitant]
     Active Substance: DEXAMETHASONE
     Dosage: 19.8 MG, UNK
     Route: 041
     Dates: start: 20140225, end: 20140617
  5. GASTER [Concomitant]
     Active Substance: FAMOTIDINE
     Dosage: 20 MG, UNK
     Route: 041
     Dates: start: 20140225, end: 20140617

REACTIONS (2)
  - Pruritus generalised [Recovering/Resolving]
  - Myalgia [Recovering/Resolving]

NARRATIVE: CASE EVENT DATE: 20140227
